FAERS Safety Report 15256414 (Version 1)
Quarter: 2018Q3

REPORT INFORMATION
  Report Type: Spontaneous
  Country: US (occurrence: US)
  Receive Date: 20180808
  Receipt Date: 20180808
  Transmission Date: 20181010
  Serious: Yes (Other)
  Sender: FDA-Public Use
  Company Number: US-OXFORD PHARMACEUTICALS, LLC-2018OXF00082

PATIENT
  Sex: Female

DRUGS (2)
  1. VICOPROFEN [Concomitant]
     Active Substance: HYDROCODONE BITARTRATE\IBUPROFEN
  2. METHOCARBAMOL. [Suspect]
     Active Substance: METHOCARBAMOL
     Indication: PAIN
     Dosage: 1000 MG, EVERY 4?6 HOURS
     Route: 048
     Dates: start: 2012

REACTIONS (2)
  - Rib fracture [Unknown]
  - Fall [Unknown]
